FAERS Safety Report 9472496 (Version 2)
Quarter: 2013Q3

REPORT INFORMATION
  Report Type: Report from Study
  Country: VE (occurrence: VE)
  Receive Date: 20130823
  Receipt Date: 20130823
  Transmission Date: 20140515
  Serious: Yes (Death, Hospitalization, Other)
  Sender: FDA-Public Use
  Company Number: PHHY2013VE088164

PATIENT
  Age: 49 Year
  Sex: Male

DRUGS (1)
  1. SANDOSTATIN LAR [Suspect]
     Indication: NEUROENDOCRINE TUMOUR
     Dosage: 20 MG, UNK

REACTIONS (8)
  - Malignant neoplasm progression [Fatal]
  - General physical health deterioration [Fatal]
  - Dehydration [Fatal]
  - Haemoglobin decreased [Unknown]
  - Hypoglycaemia [Unknown]
  - Aphagia [Unknown]
  - Metastases to liver [Unknown]
  - Diarrhoea [Unknown]
